FAERS Safety Report 12227041 (Version 3)
Quarter: 2016Q3

REPORT INFORMATION
  Report Type: Report from Study
  Country: JP (occurrence: JP)
  Receive Date: 20160331
  Receipt Date: 20160707
  Transmission Date: 20161109
  Serious: Yes (Death, Other)
  Sender: FDA-Public Use
  Company Number: JP-INCYTE CORPORATION-2016IN001862

PATIENT
  Age: 58 Year
  Sex: Male
  Weight: 60 kg

DRUGS (13)
  1. JAKAFI [Suspect]
     Active Substance: RUXOLITINIB
     Dosage: 10 MG, BID
     Route: 048
     Dates: start: 20151030, end: 20151123
  2. HYDREA [Concomitant]
     Active Substance: HYDROXYUREA
     Indication: MYELOPROLIFERATIVE NEOPLASM
     Dosage: UNK
     Dates: end: 20160209
  3. JAKAFI [Suspect]
     Active Substance: RUXOLITINIB
     Indication: MYELOPROLIFERATIVE NEOPLASM
     Dosage: 5 MG, BID
     Route: 048
     Dates: start: 20151001, end: 20151020
  4. JAKAFI [Suspect]
     Active Substance: RUXOLITINIB
     Dosage: 15 MG, BID
     Route: 048
     Dates: start: 20151214, end: 20160126
  5. JAKAFI [Suspect]
     Active Substance: RUXOLITINIB
     Dosage: 17.5 MG, BID
     Route: 048
     Dates: start: 20160127, end: 20160216
  6. HYDREA [Concomitant]
     Active Substance: HYDROXYUREA
     Indication: MYELOPROLIFERATIVE NEOPLASM
  7. CYTARABINE. [Concomitant]
     Active Substance: CYTARABINE
     Indication: MYELOPROLIFERATIVE NEOPLASM
     Dosage: 48 MG, UNK
     Route: 065
     Dates: start: 20160210, end: 20160221
  8. CYTARABINE. [Concomitant]
     Active Substance: CYTARABINE
     Indication: MYELOPROLIFERATIVE NEOPLASM
  9. RANIMUSTINE [Concomitant]
     Active Substance: RANIMUSTINE
     Indication: MYELOPROLIFERATIVE NEOPLASM
  10. JAKAFI [Suspect]
     Active Substance: RUXOLITINIB
     Dosage: 12.5 MG, BID
     Route: 048
     Dates: start: 20151124, end: 20151213
  11. JAKAFI [Suspect]
     Active Substance: RUXOLITINIB
     Dosage: 7.5 MG, BID
     Route: 048
     Dates: start: 20151021, end: 20151029
  12. JAKAFI [Suspect]
     Active Substance: RUXOLITINIB
     Dosage: 15 MG, BID
     Route: 048
     Dates: start: 20160217, end: 20160223
  13. RANIMUSTINE [Concomitant]
     Active Substance: RANIMUSTINE
     Indication: MYELOPROLIFERATIVE NEOPLASM
     Dosage: 100 MG, UNK
     Route: 065
     Dates: start: 20160223, end: 20160223

REACTIONS (4)
  - Haemorrhage intracranial [Fatal]
  - Myeloproliferative neoplasm [Not Recovered/Not Resolved]
  - Malignant neoplasm progression [Not Recovered/Not Resolved]
  - Product use issue [Unknown]

NARRATIVE: CASE EVENT DATE: 20151020
